FAERS Safety Report 20935319 (Version 1)
Quarter: 2022Q2

REPORT INFORMATION
  Report Type: Spontaneous
  Country: FR (occurrence: FR)
  Receive Date: 20220609
  Receipt Date: 20220609
  Transmission Date: 20220720
  Serious: Yes (Other)
  Sender: FDA-Public Use
  Company Number: None

PATIENT
  Age: 63 Year
  Sex: Female
  Weight: 54.8 kg

DRUGS (30)
  1. NEURONTIN [Suspect]
     Active Substance: GABAPENTIN
     Indication: Neuralgia
     Dosage: 400 MG, 3X/DAY
     Route: 048
     Dates: start: 20220112, end: 20220216
  2. NEURONTIN [Suspect]
     Active Substance: GABAPENTIN
     Dosage: 100 MG, 3X/DAY
     Route: 048
     Dates: start: 20220119, end: 20220121
  3. NEURONTIN [Suspect]
     Active Substance: GABAPENTIN
     Dosage: 600 MG, 3X/DAY (IN MORNING, AT LUNCH, AT EVENING)
     Route: 048
     Dates: start: 20220307, end: 20220310
  4. NEURONTIN [Suspect]
     Active Substance: GABAPENTIN
     Dosage: 900 MG, 3X/DAY(IN MORNING, AT LUNCH, AT EVENING)
     Route: 048
     Dates: start: 20220310, end: 20220328
  5. NEURONTIN [Suspect]
     Active Substance: GABAPENTIN
     Dosage: 200 MG, 3X/DAY
     Route: 048
     Dates: start: 20220121, end: 20220206
  6. NEURONTIN [Suspect]
     Active Substance: GABAPENTIN
     Dosage: 700 MG IN MORNING, AND 500 MG AT LUNCH AND AT EVENING
     Route: 048
     Dates: start: 20220303, end: 20220307
  7. NEURONTIN [Suspect]
     Active Substance: GABAPENTIN
     Dosage: 600 MG IN MORNING, THEN  400MG AT LUNCH AND EVENING
     Route: 048
     Dates: start: 20220216, end: 20220303
  8. NEURONTIN [Suspect]
     Active Substance: GABAPENTIN
     Dosage: 1200 MG, 3X/DAY (IN MORNING, AT LUNCH AND IN EVENING)
     Route: 048
     Dates: start: 20220328
  9. NEURONTIN [Suspect]
     Active Substance: GABAPENTIN
     Dosage: 300 MG, 3X/DAY
     Route: 048
     Dates: start: 20220206, end: 20220212
  10. TRAMADOL HYDROCHLORIDE [Concomitant]
     Active Substance: TRAMADOL HYDROCHLORIDE
     Indication: Pain
     Dosage: 150 MG, 2X/DAY (IN MORNING AND IN EVENING)
     Route: 048
     Dates: start: 20220108, end: 20220110
  11. MIANSERIN HYDROCHLORIDE [Concomitant]
     Active Substance: MIANSERIN HYDROCHLORIDE
     Indication: Depression
     Dosage: 60 MG
     Route: 048
     Dates: start: 20220131, end: 20220303
  12. MIANSERIN HYDROCHLORIDE [Concomitant]
     Active Substance: MIANSERIN HYDROCHLORIDE
     Dosage: 30 MG
     Route: 048
     Dates: start: 20211228, end: 20220130
  13. LEVOTHYROXINE [Concomitant]
     Active Substance: LEVOTHYROXINE
     Indication: Hypothyroidism
     Dosage: 1 DF IN MORNING
     Route: 048
     Dates: start: 20220307, end: 20220408
  14. LEVOTHYROXINE [Concomitant]
     Active Substance: LEVOTHYROXINE
     Indication: Basedow^s disease
  15. ACETAMINOPHEN [Concomitant]
     Active Substance: ACETAMINOPHEN
     Indication: Pain
     Dosage: 1000 MG, 3X/DAY
     Route: 048
     Dates: start: 20211204, end: 20220131
  16. ACETAMINOPHEN [Concomitant]
     Active Substance: ACETAMINOPHEN
     Dosage: 1000 MG, 3X/DAY
     Route: 048
     Dates: start: 20220208
  17. ACETAMINOPHEN [Concomitant]
     Active Substance: ACETAMINOPHEN
     Dosage: 1000 MG, 4X/DAY
     Route: 041
     Dates: start: 20220131, end: 20220207
  18. TRAMADOL HYDROCHLORIDE [Concomitant]
     Active Substance: TRAMADOL HYDROCHLORIDE
     Indication: Pain
     Dosage: 50 MG, 2X/DAY (1DF IN MORNING,1DF IN EVENING)
     Route: 048
     Dates: start: 20211216, end: 20220108
  19. CYMBALTA [Concomitant]
     Active Substance: DULOXETINE HYDROCHLORIDE
     Indication: Pain
     Dosage: 30 MG IN MORNING
     Route: 048
     Dates: start: 20220304, end: 20220307
  20. CYMBALTA [Concomitant]
     Active Substance: DULOXETINE HYDROCHLORIDE
     Dosage: 60 MG IN MORNING
     Route: 048
     Dates: start: 20220307, end: 20220426
  21. TRAMADOL HYDROCHLORIDE [Concomitant]
     Active Substance: TRAMADOL HYDROCHLORIDE
     Indication: Pain
     Dosage: 5 DROP, 3X/DAY (IN MORNNG, AT LUNCH AND EVENING)
     Route: 048
     Dates: start: 20220307, end: 20220321
  22. TRAMADOL HYDROCHLORIDE [Concomitant]
     Active Substance: TRAMADOL HYDROCHLORIDE
     Dosage: 10 DROP, 3X/DAY (IN MORNNG, AT LUNCH AND EVENING)
     Route: 048
     Dates: start: 20220321, end: 20220414
  23. RACECADOTRIL [Concomitant]
     Active Substance: RACECADOTRIL
     Indication: Diarrhoea
     Dosage: 100 MG, 3X/DAY  (IN MORNNG, AT LUNCH AND EVENING)
     Route: 048
     Dates: start: 20211226, end: 20220119
  24. RACECADOTRIL [Concomitant]
     Active Substance: RACECADOTRIL
     Dosage: 100 MG, 3X/DAY (IN MORNNG, AT LUNCH AND EVENING)
     Route: 048
     Dates: start: 20220310, end: 20220321
  25. KEPPRA [Concomitant]
     Active Substance: LEVETIRACETAM
     Indication: Epilepsy
     Dosage: 250 MG, 2X/DAY (IN MORNING AND EVENING)
     Route: 048
     Dates: start: 20211225, end: 20211226
  26. KEPPRA [Concomitant]
     Active Substance: LEVETIRACETAM
     Indication: Loss of consciousness
     Dosage: 500 MG, 2X/DAY(IN MORNING AND EVENING)
     Route: 048
     Dates: start: 20211226, end: 20220124
  27. KEPPRA [Concomitant]
     Active Substance: LEVETIRACETAM
     Dosage: 500 MG, 2X/DAY(IN MORNING AND EVENING)
     Route: 048
     Dates: start: 20220307, end: 20220316
  28. KEPPRA [Concomitant]
     Active Substance: LEVETIRACETAM
     Dosage: 750 MG, 2X/DAY (IN MORNING AND EVENING)
     Route: 048
     Dates: start: 20220124, end: 20220307
  29. NEO-MERCAZOLE [Concomitant]
     Active Substance: CARBIMAZOLE
     Indication: Basedow^s disease
     Dosage: 15 MG IIN MORNING AND 10 MG IN EVENING
     Route: 048
     Dates: start: 20220307, end: 20220407
  30. NEO-MERCAZOLE [Concomitant]
     Active Substance: CARBIMAZOLE
     Dosage: 10 MG, 2X/DAY (IN MORNING AND EVENING)
     Route: 048
     Dates: start: 20220125, end: 20220307

REACTIONS (1)
  - Cholestasis [Not Recovered/Not Resolved]

NARRATIVE: CASE EVENT DATE: 20220221
